FAERS Safety Report 7565283-8 (Version None)
Quarter: 2011Q2

REPORT INFORMATION
  Report Type: 
  Country: None (occurrence: None)
  Receive Date: 20110623
  Receipt Date: 20110614
  Transmission Date: 20111010
  Serious: Yes (Hospitalization)
  Sender: FDA-Public Use
  Company Number: FR-BRISTOL-MYERS SQUIBB COMPANY-15833510

PATIENT
  Age: 45 Year
  Sex: Female

DRUGS (6)
  1. TRILEPTAL [Concomitant]
     Indication: EPILEPSY
     Dosage: TRILEPTAL 600 MG TABLET
     Route: 048
  2. NORVIR [Concomitant]
     Indication: HIV INFECTION
     Route: 048
  3. EPIVIR [Concomitant]
     Indication: HIV INFECTION
     Route: 048
  4. REYATAZ [Suspect]
     Indication: HIV INFECTION
     Route: 048
     Dates: start: 20090601, end: 20110509
  5. ISENTRESS [Concomitant]
     Indication: HIV INFECTION
     Dosage: ISENTRESS 400 MG TABLET
     Route: 048
  6. PLAVIX [Concomitant]
     Indication: CEREBROVASCULAR ACCIDENT
     Route: 048

REACTIONS (7)
  - INJURY [None]
  - PYELONEPHRITIS [None]
  - RENAL FAILURE ACUTE [None]
  - LOSS OF CONSCIOUSNESS [None]
  - NEPHROLITHIASIS [None]
  - VITAMIN D DEFICIENCY [None]
  - FALL [None]
